FAERS Safety Report 9780183 (Version 1)
Quarter: 2013Q4

REPORT INFORMATION
  Report Type: Spontaneous
  Country: IT (occurrence: IT)
  Receive Date: 20131223
  Receipt Date: 20131223
  Transmission Date: 20140711
  Serious: Yes (Other)
  Sender: FDA-Public Use
  Company Number: PHHY2013IT150119

PATIENT
  Age: 72 Year
  Sex: Female

DRUGS (11)
  1. ZOMETA [Suspect]
     Indication: BREAST CANCER
     Dosage: 4 MG, CYCLIC
     Route: 042
     Dates: start: 20080601, end: 20090330
  2. EUTIROX [Concomitant]
     Dosage: UNK UKN, UNK
  3. SEQUACOR [Concomitant]
     Dosage: UNK UKN, UNK
  4. PANTORC [Concomitant]
     Dosage: UNK UKN, UNK
  5. SERETIDE [Concomitant]
     Dosage: UNK UKN, UNK
  6. DUOVENT [Concomitant]
     Dosage: UNK UKN, UNK
  7. SINGULAIR [Concomitant]
     Dosage: UNK UKN, UNK
  8. TAREG [Concomitant]
     Dosage: UNK UKN, UNK
  9. LYRICA [Concomitant]
     Dosage: UNK UKN, UNK
  10. FASLODEX [Concomitant]
     Dosage: UNK UKN, UNK
  11. XELODA [Concomitant]
     Dosage: UNK UKN, UNK

REACTIONS (1)
  - Osteonecrosis of jaw [Recovered/Resolved]
